FAERS Safety Report 8394099-8 (Version None)
Quarter: 2012Q2

REPORT INFORMATION
  Report Type: 
  Country: None (occurrence: None)
  Receive Date: 20120530
  Receipt Date: 20120522
  Transmission Date: 20120825
  Serious: Yes (Other)
  Sender: FDA-Public Use
  Company Number: CA-JNJFOC-20120517748

PATIENT
  Sex: Female
  Weight: 127 kg

DRUGS (13)
  1. PANTOPRAZOLE SODIUM [Concomitant]
  2. HYDROCHLOROTHIAZIDE [Concomitant]
  3. TYLENOL [Concomitant]
  4. METHOTREXATE [Concomitant]
  5. STELARA [Suspect]
     Indication: PSORIASIS
     Route: 058
     Dates: start: 20120515
  6. STELARA [Suspect]
     Route: 058
     Dates: start: 20111026
  7. NAPROXEN [Concomitant]
  8. SYNTHROID [Concomitant]
  9. XALATAN [Concomitant]
  10. CITALOPRAM HYDROBROMIDE [Concomitant]
  11. ATACAND [Concomitant]
  12. FOLIC ACID [Concomitant]
  13. PENNSAID [Concomitant]

REACTIONS (2)
  - DYSPNOEA [None]
  - PAINFUL RESPIRATION [None]
